FAERS Safety Report 7679358-6 (Version None)
Quarter: 2011Q3

REPORT INFORMATION
  Report Type: 
  Country: None (occurrence: None)
  Receive Date: 20110812
  Receipt Date: 20110810
  Transmission Date: 20111222
  Serious: Yes (Death)
  Sender: FDA-Public Use
  Company Number: PHHY2011CA70266

PATIENT
  Sex: Male

DRUGS (5)
  1. METFORMIN HCL [Concomitant]
     Dosage: 500 MG, BID
     Route: 048
  2. SEROQUEL [Concomitant]
     Dosage: 200 MG, HS
     Route: 048
  3. RAMIPRIL [Concomitant]
     Dosage: 5 MG, DAILY
  4. CLOZAPINE [Suspect]
     Indication: SCHIZOPHRENIA
     Dosage: 650 MG, HS
     Route: 048
     Dates: start: 20020919, end: 20110723
  5. LIPITOR [Concomitant]
     Dosage: 10 MG, DAILY
     Route: 048

REACTIONS (1)
  - CARDIAC ARREST [None]
